FAERS Safety Report 7779508-7 (Version None)
Quarter: 2011Q3

REPORT INFORMATION
  Report Type: 
  Country: None (occurrence: None)
  Receive Date: 20110927
  Receipt Date: 20110919
  Transmission Date: 20111222
  Serious: Yes (Other)
  Sender: FDA-Public Use
  Company Number: AT-AMGEN-AUTSP2011042609

PATIENT
  Sex: Female

DRUGS (3)
  1. NOLVADEX                           /00388701/ [Concomitant]
     Indication: NEOPLASM MALIGNANT
  2. PROLIA [Suspect]
     Indication: BONE DENSITY ABNORMAL
     Dosage: UNK
     Dates: start: 20110808
  3. ENANTONE                           /00726901/ [Concomitant]

REACTIONS (5)
  - ABDOMINAL PAIN UPPER [None]
  - BURNING SENSATION [None]
  - PRURITUS GENERALISED [None]
  - RASH [None]
  - PAIN OF SKIN [None]
